FAERS Safety Report 8123807-6 (Version None)
Quarter: 2012Q1

REPORT INFORMATION
  Report Type: 
  Country: None (occurrence: None)
  Receive Date: 20120208
  Receipt Date: 20120130
  Transmission Date: 20120608
  Serious: Yes (Other)
  Sender: FDA-Public Use
  Company Number: US-ASTRAZENECA-2012SE06490

PATIENT
  Age: 78 Year
  Sex: Female
  Weight: 83 kg

DRUGS (21)
  1. ALBUTEROL [Concomitant]
     Indication: WHEEZING
     Dosage: 90 MCG, TWO PUFFS, 4-6 HOURS, AS REQUIRED
     Dates: start: 20101206
  2. ZANAFLEX [Concomitant]
     Route: 048
     Dates: start: 20110121
  3. ALBUTEROL [Concomitant]
     Indication: DYSPNOEA
     Dosage: 90 MCG, TWO PUFFS, 4-6 HOURS, AS REQUIRED
     Dates: start: 20101206
  4. DIPYRIDAMOLE [Concomitant]
     Route: 048
     Dates: start: 20110805
  5. BYSTOLIC [Concomitant]
     Indication: BLOOD PRESSURE ABNORMAL
     Route: 048
     Dates: start: 20111208
  6. CHERATUSSIN AC [Concomitant]
     Indication: COUGH
     Dosage: 100-10MG/5ML, AS REQUIRED
     Route: 048
     Dates: start: 20111220
  7. NITROGLYCERIN [Concomitant]
     Dates: start: 20110225
  8. SPIRIVA [Concomitant]
     Dosage: 18 MCG, INHALE CONTENTS OF ONE CAPSULE VIA HANDIHALER, ONCE DAILY
     Dates: start: 20110805
  9. SPIRONOLACTONE [Concomitant]
     Route: 048
  10. VITAMIN D [Concomitant]
     Dosage: 2000 UNIT, ONE DAILY
     Route: 048
     Dates: start: 20100413
  11. TIZANIDINE HCL [Concomitant]
     Route: 048
     Dates: start: 20111208
  12. CRESTOR [Suspect]
     Route: 048
     Dates: start: 20100302
  13. TRAMADOL HCL [Concomitant]
     Indication: PAIN
     Dosage: 50 MG, EVERY EIGHT HOURS, AS REQUIRED
     Route: 048
     Dates: start: 20120104
  14. ZAROXOLYN [Concomitant]
     Dosage: 2.5 MG, 1 DF ON MONDAY, WEDNESDAY, FRIDAY BEFORE MORNING LASIX
     Dates: start: 20111208
  15. ISOSORBIDE MONONITRATE CR [Concomitant]
     Route: 048
     Dates: start: 20110805
  16. LASIX [Concomitant]
     Dosage: 40 MG, TWO TIMES A DAY, EXCEPT ON MONDAY, WEDNESDAY, FRIDAY
     Route: 048
     Dates: start: 20110516
  17. ALBUTEROL SULFATE [Concomitant]
     Dosage: 2.5 MG/3ML, 0.083%, USE 1 VIAL EVERY 4-6 HOURS VIA NEBULISER
     Dates: start: 20111118
  18. MIRALAX [Concomitant]
     Dosage: 17 GRAMS IN WATER, DAILY
     Dates: start: 20100302
  19. PRILOSEC OTC [Suspect]
     Route: 048
     Dates: start: 20110106
  20. SYMBICORT [Concomitant]
     Dosage: 160/4.5 MCG, TWO PUFFS, TWO TIMES A DAY
     Route: 055
     Dates: start: 20111227
  21. GARLIC [Concomitant]
     Route: 048
     Dates: start: 20100413

REACTIONS (19)
  - DEEP VEIN THROMBOSIS [None]
  - ARTERIOSCLEROSIS CORONARY ARTERY [None]
  - CONTUSION [None]
  - MITRAL VALVE INCOMPETENCE [None]
  - TYPE 2 DIABETES MELLITUS [None]
  - DIVERTICULITIS [None]
  - EMBOLISM VENOUS [None]
  - BRONCHITIS [None]
  - ABDOMINAL HERNIA [None]
  - ABDOMINAL PAIN LOWER [None]
  - VITAMIN D DEFICIENCY [None]
  - HYPERCHOLESTEROLAEMIA [None]
  - ESSENTIAL HYPERTENSION [None]
  - CELLULITIS [None]
  - RENAL FAILURE [None]
  - CHEST PAIN [None]
  - CHRONIC OBSTRUCTIVE PULMONARY DISEASE [None]
  - GASTROOESOPHAGEAL REFLUX DISEASE [None]
  - SCIATICA [None]
